FAERS Safety Report 15120916 (Version 1)
Quarter: 2018Q3

REPORT INFORMATION
  Report Type: Spontaneous
  Country: US (occurrence: US)
  Receive Date: 20180709
  Receipt Date: 20180709
  Transmission Date: 20181010
  Serious: No
  Sender: FDA-Public Use
  Company Number: US-SA-2018SA178043

PATIENT
  Sex: Female

DRUGS (1)
  1. KEVZARA [Suspect]
     Active Substance: SARILUMAB
     Indication: RHEUMATOID ARTHRITIS
     Dosage: 200 MG, QW
     Dates: start: 201806

REACTIONS (6)
  - Gait disturbance [Unknown]
  - Skin discolouration [Unknown]
  - Product use issue [Unknown]
  - Pain [Unknown]
  - Mobility decreased [Unknown]
  - Joint swelling [Unknown]
